FAERS Safety Report 10605784 (Version 2)
Quarter: 2015Q1

REPORT INFORMATION
  Report Type: Report from Study
  Country: US (occurrence: US)
  Receive Date: 20141125
  Receipt Date: 20150126
  Transmission Date: 20150720
  Serious: Yes (Other)
  Sender: FDA-Public Use
  Company Number: US-009507513-1411USA006173

PATIENT
  Age: 27 Year
  Sex: Male

DRUGS (2)
  1. FRAGMIN [Concomitant]
     Active Substance: DALTEPARIN SODIUM
     Dosage: 5000 UNITS TWICE DAILY
  2. DECA-DURABOLIN [Suspect]
     Active Substance: NANDROLONE DECANOATE

REACTIONS (1)
  - Osteonecrosis [Unknown]
